FAERS Safety Report 17514232 (Version 1)
Quarter: 2020Q1

REPORT INFORMATION
  Report Type: Spontaneous
  Country: GB (occurrence: GB)
  Receive Date: 20200309
  Receipt Date: 20200309
  Transmission Date: 20200409
  Serious: Yes (Hospitalization)
  Sender: FDA-Public Use
  Company Number: GB-009507513-2003GBR001296

PATIENT
  Age: 76 Year
  Sex: Female

DRUGS (9)
  1. ALENDRONATE SODIUM. [Suspect]
     Active Substance: ALENDRONATE SODIUM
     Dosage: UNK
     Route: 048
  2. ASPIRIN. [Suspect]
     Active Substance: ASPIRIN
     Dosage: UNK
     Route: 048
  3. TICAGRELOR. [Suspect]
     Active Substance: TICAGRELOR
     Dosage: UNK
     Route: 048
  4. ATORVASTATIN [Concomitant]
     Active Substance: ATORVASTATIN
     Dosage: UNK
  5. NICOTINE. [Concomitant]
     Active Substance: NICOTINE
     Dosage: UNK
  6. CALCICHEW D3 [Concomitant]
     Active Substance: CALCIUM\CHOLECALCIFEROL
     Dosage: UNK
  7. NICORANDIL [Suspect]
     Active Substance: NICORANDIL
     Dosage: UNK
     Route: 048
  8. AMLODIPINE [Concomitant]
     Active Substance: AMLODIPINE BESYLATE
     Dosage: UNK
  9. RAMIPRIL. [Concomitant]
     Active Substance: RAMIPRIL
     Dosage: UNK

REACTIONS (2)
  - Gastric ulcer haemorrhage [Recovering/Resolving]
  - Upper gastrointestinal haemorrhage [Recovering/Resolving]
